FAERS Safety Report 14841514 (Version 1)
Quarter: 2018Q2

REPORT INFORMATION
  Report Type: Spontaneous
  Country: US (occurrence: US)
  Receive Date: 20180503
  Receipt Date: 20180503
  Transmission Date: 20180711
  Serious: Yes (Other)
  Sender: FDA-Public Use
  Company Number: US-BAYER-2018-080674

PATIENT
  Sex: Female

DRUGS (2)
  1. MIRENA [Suspect]
     Active Substance: LEVONORGESTREL
     Dosage: 20 MCG/24HR, CONT
     Route: 015
     Dates: start: 201206
  2. MIRENA [Suspect]
     Active Substance: LEVONORGESTREL

REACTIONS (5)
  - Pain [Not Recovered/Not Resolved]
  - Menorrhagia [None]
  - Device use issue [None]
  - Genital haemorrhage [Not Recovered/Not Resolved]
  - Amenorrhoea [None]

NARRATIVE: CASE EVENT DATE: 201803
